FAERS Safety Report 13299002 (Version 1)
Quarter: 2017Q1

REPORT INFORMATION
  Report Type: Spontaneous
  Country: CH (occurrence: AT)
  Receive Date: 20170306
  Receipt Date: 20170306
  Transmission Date: 20170428
  Serious: Yes (Disabling)
  Sender: FDA-Public Use
  Company Number: CH-LPDUSPRD-20170221

PATIENT
  Age: 67 Year
  Sex: Male
  Weight: 57 kg

DRUGS (1)
  1. FERINJECT [Suspect]
     Active Substance: FERRIC CARBOXYMALTOSE
     Dosage: 1000 MG   3X OVER 3 WEEKS
     Route: 042
     Dates: start: 20100302, end: 20130710

REACTIONS (3)
  - Hypophosphataemia [Recovered/Resolved with Sequelae]
  - Osteomalacia [Recovered/Resolved with Sequelae]
  - Calculus urinary [Recovered/Resolved with Sequelae]

NARRATIVE: CASE EVENT DATE: 20101029
